FAERS Safety Report 9934558 (Version 1)
Quarter: 2014Q1

REPORT INFORMATION
  Report Type: Spontaneous
  Country: DE (occurrence: DE)
  Receive Date: 20140228
  Receipt Date: 20140228
  Transmission Date: 20141002
  Serious: Yes (Other)
  Sender: FDA-Public Use
  Company Number: DE-TEVA-463379GER

PATIENT
  Age: 75 Year
  Sex: Female
  Weight: 73 kg

DRUGS (10)
  1. TILIDIN /NALOXON 50/4 RETARD [Suspect]
     Indication: PAIN
     Dosage: 2 DOSAGE FORMS DAILY; 1DF: TILIDIN 50MG /NALOXON 4MG
     Route: 048
     Dates: start: 20131120, end: 20131206
  2. PANTOPRAZOL [Suspect]
     Indication: ABDOMINAL PAIN UPPER
     Dosage: 20 MILLIGRAM DAILY;
     Route: 048
     Dates: start: 20131120, end: 20131206
  3. ALLOPURINOL 300 [Suspect]
     Indication: GOUT
     Dosage: .5 DOSAGE FORMS DAILY;
     Dates: end: 20131206
  4. BISOPROLOL 5 - 1 A PHARMA [Concomitant]
     Dosage: .5 DOSAGE FORMS DAILY;
     Route: 048
     Dates: end: 20131206
  5. RAMIPRIL 5/12 [Concomitant]
     Indication: HYPERTENSION
     Dosage: .5 DOSAGE FORMS DAILY;
     Route: 048
     Dates: end: 20131206
  6. L-THYROXIN 150 [Concomitant]
     Indication: THYROID CANCER
     Route: 048
  7. DEKRISTOL 20000 [Concomitant]
     Indication: OSTEOPOROSIS
     Route: 048
  8. NOVAMINSULFON [Concomitant]
     Indication: PAIN
     Dosage: 60 GTT DAILY;
     Route: 048
     Dates: start: 20131120, end: 20131206
  9. MCP [Concomitant]
     Dosage: 40 GTT DAILY;
     Route: 048
     Dates: start: 20131120, end: 20131206
  10. MACROGOL [Concomitant]
     Dosage: 1 DOSAGE FORMS DAILY;
     Route: 048
     Dates: start: 20131120, end: 20131206

REACTIONS (3)
  - Hepatic enzyme increased [Recovered/Resolved]
  - Fatigue [Recovered/Resolved]
  - Decreased appetite [Recovered/Resolved]
